FAERS Safety Report 11533851 (Version 2)
Quarter: 2015Q4

REPORT INFORMATION
  Report Type: Report from Study
  Country: DE (occurrence: DE)
  Receive Date: 20150922
  Receipt Date: 20151006
  Transmission Date: 20160304
  Serious: Yes (Other)
  Sender: FDA-Public Use
  Company Number: DE-ROCHE-1636240

PATIENT
  Sex: Female

DRUGS (11)
  1. QUENSYL [Concomitant]
     Active Substance: HYDROXYCHLOROQUINE
  2. CORTISONE [Concomitant]
     Active Substance: CORTISONE\HYDROCORTISONE
     Indication: RHEUMATOID ARTHRITIS
  3. ROACTEMRA [Suspect]
     Active Substance: TOCILIZUMAB
     Indication: RHEUMATOID ARTHRITIS
     Route: 058
     Dates: start: 20140801
  4. SPIRONOLACTON [Concomitant]
     Active Substance: SPIRONOLACTONE
  5. FRUBIASE [Concomitant]
  6. LODOTRA [Concomitant]
     Active Substance: PREDNISONE
  7. FENTANYL. [Concomitant]
     Active Substance: FENTANYL
  8. NEBIVOLOL. [Concomitant]
     Active Substance: NEBIVOLOL
  9. LYRICA [Concomitant]
     Active Substance: PREGABALIN
  10. METHOTREXATE [Concomitant]
     Active Substance: METHOTREXATE
     Indication: RHEUMATOID ARTHRITIS
  11. RAMILICH [Concomitant]
     Active Substance: RAMIPRIL

REACTIONS (4)
  - Hyperhidrosis [Unknown]
  - Fracture delayed union [Unknown]
  - Blood triglycerides increased [Not Recovered/Not Resolved]
  - Stress fracture [Recovering/Resolving]
